FAERS Safety Report 5129452-9 (Version None)
Quarter: 2006Q4

REPORT INFORMATION
  Report Type: 
  Country: None (occurrence: None)
  Receive Date: 20061018
  Receipt Date: 20061016
  Transmission Date: 20070319
  Serious: Yes (Hospitalization)
  Sender: FDA-Public Use
  Company Number: CN-BRISTOL-MYERS SQUIBB COMPANY-13542063

PATIENT
  Age: 4 Month
  Sex: Male

DRUGS (1)
  1. CAPTOPRIL [Suspect]
     Indication: PULMONARY HYPERTENSION
     Dosage: FIRST 2 MONTHS: 1/12 1 TABLET QD; THE NEXT TWO MONTHS (DURING EVENT) 1/6 OF ONE TABLET TWICE A DAY
     Route: 048

REACTIONS (2)
  - HAEMATURIA [None]
  - PROTEINURIA [None]
